FAERS Safety Report 5954181-9 (Version None)
Quarter: 2008Q4

REPORT INFORMATION
  Report Type: 
  Country: None (occurrence: None)
  Receive Date: 20081117
  Receipt Date: 20081107
  Transmission Date: 20090506
  Serious: Yes (Other)
  Sender: FDA-Public Use
  Company Number: DE-BRISTOL-MYERS SQUIBB COMPANY-14248827

PATIENT
  Age: 77 Year
  Sex: Female

DRUGS (4)
  1. ERBITUX [Suspect]
     Indication: COLORECTAL CANCER STAGE IV
     Dosage: ERBITUX 2 MG/ML INITIATED ON 20SEP07 WITH DOSE:250 MG/M2; RECENT INF:27MAR08(290MG/M2).
     Route: 042
     Dates: start: 20070920
  2. FENISTIL [Concomitant]
     Indication: PREMEDICATION
     Dosage: 1 DOSAGE FORM=1 AMPOULE
     Route: 042
  3. RANITIDINE [Concomitant]
     Indication: PREMEDICATION
     Dosage: 1 DOSAGE FORM=1 AMPOULE
     Route: 042
  4. DEXAMETHASONE 0.5MG TAB [Concomitant]
     Indication: PREMEDICATION
     Route: 042

REACTIONS (1)
  - SENSATION OF FOREIGN BODY [None]
